FAERS Safety Report 8694370 (Version 3)
Quarter: 2013Q1

REPORT INFORMATION
  Report Type: Spontaneous
  Country: PL (occurrence: PL)
  Receive Date: 20120731
  Receipt Date: 20130108
  Transmission Date: 20140127
  Serious: Yes (Death, Hospitalization, Other)
  Sender: FDA-Public Use
  Company Number: PL-CELGENEUS-129-21880-12072021

PATIENT
  Age: 52 Year
  Sex: Female

DRUGS (8)
  1. REVLIMID [Suspect]
     Indication: PLASMA CELL MYELOMA
     Dosage: 25 MILLIGRAM
     Route: 048
     Dates: start: 2010
  2. REVLIMID [Suspect]
     Indication: MYELOFIBROSIS
     Dosage: 25 MILLIGRAM
     Route: 048
     Dates: start: 20110105, end: 20120524
  3. REVLIMID [Suspect]
     Route: 048
     Dates: end: 201204
  4. PAMIFOS [Concomitant]
     Indication: PRODUCT USED FOR UNKNOWN INDICATION
     Route: 065
     Dates: start: 20100105, end: 20120426
  5. ARANESP [Concomitant]
     Indication: PRODUCT USED FOR UNKNOWN INDICATION
     Route: 065
     Dates: start: 20110519, end: 20110915
  6. MILURIT [Concomitant]
     Indication: PRODUCT USED FOR UNKNOWN INDICATION
     Dosage: 100-200MG
     Route: 065
     Dates: start: 20100818, end: 20110510
  7. CLEXANE [Concomitant]
     Indication: THROMBOSIS
     Dosage: 1.2 MILLILITER
     Route: 065
     Dates: start: 20101124
  8. CLEXANE [Concomitant]
     Dosage: 2X0.8ML

REACTIONS (5)
  - Thrombosis [Fatal]
  - Hepatomegaly [Not Recovered/Not Resolved]
  - Hepatic enzyme increased [Not Recovered/Not Resolved]
  - Splenomegaly [Not Recovered/Not Resolved]
  - Haemoglobin decreased [Unknown]
